FAERS Safety Report 18842721 (Version 1)
Quarter: 2021Q1

REPORT INFORMATION
  Report Type: Spontaneous
  Country: CA (occurrence: CA)
  Receive Date: 20210204
  Receipt Date: 20210204
  Transmission Date: 20210419
  Serious: Yes (Other)
  Sender: FDA-Public Use
  Company Number: CA-ORION CORPORATION ORION PHARMA-21_00012968

PATIENT
  Age: 50 Year
  Sex: Female

DRUGS (13)
  1. HUMIRA [Suspect]
     Active Substance: ADALIMUMAB
     Indication: PSORIATIC ARTHROPATHY
     Route: 058
  2. METHOTREXATE. [Concomitant]
     Active Substance: METHOTREXATE
     Dosage: 25 MG
     Route: 058
  3. RISEDRONATE SODIUM. [Concomitant]
     Active Substance: RISEDRONATE SODIUM
     Route: 065
  4. COSENTYX [Suspect]
     Active Substance: SECUKINUMAB
     Indication: ARTHRITIS
     Route: 065
  5. ORENCIA [Suspect]
     Active Substance: ABATACEPT
     Indication: PRODUCT USED FOR UNKNOWN INDICATION
     Route: 065
  6. REMICADE [Suspect]
     Active Substance: INFLIXIMAB
     Indication: PRODUCT USED FOR UNKNOWN INDICATION
     Route: 065
  7. METHOTREXATE. [Concomitant]
     Active Substance: METHOTREXATE
     Route: 048
  8. RIFAMPIN. [Concomitant]
     Active Substance: RIFAMPIN
     Route: 065
  9. PREDNISONE. [Concomitant]
     Active Substance: PREDNISONE
     Route: 065
  10. METHOTREXATE (TRADE NAME UNKNOWN) [Suspect]
     Active Substance: METHOTREXATE
     Indication: PSORIATIC ARTHROPATHY
     Route: 065
  11. HYDROXYCHLOROQUINE [Suspect]
     Active Substance: HYDROXYCHLOROQUINE
     Indication: PRODUCT USED FOR UNKNOWN INDICATION
     Route: 065
  12. CARBOCAL [Concomitant]
     Active Substance: CALCIUM CARBONATE
     Route: 065
  13. PLAQUENIL [Concomitant]
     Active Substance: HYDROXYCHLOROQUINE SULFATE
     Route: 048

REACTIONS (29)
  - Drug intolerance [Unknown]
  - Epicondylitis [Unknown]
  - Herpes zoster [Unknown]
  - Nausea [Unknown]
  - Rhinovirus infection [Unknown]
  - Enterovirus infection [Unknown]
  - Palmoplantar pustulosis [Unknown]
  - Swelling [Unknown]
  - Weight increased [Unknown]
  - Off label use [Unknown]
  - Arthritis [Unknown]
  - Decreased activity [Unknown]
  - Hepatic enzyme increased [Unknown]
  - Hypoaesthesia [Unknown]
  - Therapeutic product effect decreased [Unknown]
  - Condition aggravated [Unknown]
  - Hypertension [Unknown]
  - Inflammation [Unknown]
  - Pyrexia [Unknown]
  - Dactylitis [Unknown]
  - Psoriasis [Unknown]
  - Rash [Unknown]
  - Drug ineffective [Unknown]
  - Musculoskeletal stiffness [Unknown]
  - Arthralgia [Unknown]
  - Arthropathy [Unknown]
  - Synovitis [Unknown]
  - Asthma [Unknown]
  - Fatigue [Unknown]
